FAERS Safety Report 5551659-7 (Version None)
Quarter: 2007Q4

REPORT INFORMATION
  Report Type: 
  Country: None (occurrence: None)
  Receive Date: 20071129
  Receipt Date: 20070430
  Transmission Date: 20080405
  Serious: Yes (Hospitalization, Other)
  Sender: FDA-Public Use
  Company Number: US200606002849

PATIENT
  Age: 44 Year
  Sex: Male
  Weight: 83.9 kg

DRUGS (11)
  1. ZYPREXA [Suspect]
     Dosage: 10 MG, 50 MG, 20 MG
     Dates: start: 20030905, end: 20031013
  2. ZYPREXA [Suspect]
     Dosage: 10 MG, 50 MG, 20 MG
     Dates: start: 20060511, end: 20060607
  3. ZYPREXA [Suspect]
     Dosage: 10 MG, 50 MG, 20 MG
     Dates: start: 20060511, end: 20060607
  4. ZYPREXA [Suspect]
     Dosage: 10 MG, 50 MG, 20 MG
     Dates: start: 20060614, end: 20060621
  5. ZYPREXA [Suspect]
     Dosage: 10 MG, 50 MG, 20 MG
     Dates: start: 20060614, end: 20060621
  6. ZYPREXA [Suspect]
     Dosage: 10 MG, 50 MG, 20 MG
     Dates: start: 20040114
  7. HALOPERIDOL DECANOATE [Concomitant]
  8. HALOPERIDOL [Concomitant]
  9. FLUPHENAZINE DECANOATE [Concomitant]
  10. BENZTROPINE MESYLATE [Concomitant]
  11. FLUOXETINE [Concomitant]

REACTIONS (6)
  - DIABETES MELLITUS [None]
  - DIABETIC COMA [None]
  - DIABETIC KETOACIDOSIS [None]
  - HYPERTENSION [None]
  - METABOLIC DISORDER [None]
  - OVERDOSE [None]
